FAERS Safety Report 4844972-X (Version None)
Quarter: 2005Q4

REPORT INFORMATION
  Report Type: 
  Country: None (occurrence: None)
  Receive Date: 20051129
  Receipt Date: 20051118
  Transmission Date: 20060501
  Serious: Yes (Hospitalization)
  Sender: FDA-Public Use
  Company Number: 2005157806

PATIENT
  Age: 67 Year
  Sex: Male

DRUGS (7)
  1. CABERGOLINE [Suspect]
     Indication: PARKINSON'S DISEASE
     Dosage: SEE IMAGE
     Route: 048
     Dates: end: 19990401
  2. CABERGOLINE [Suspect]
     Indication: PARKINSON'S DISEASE
     Dosage: SEE IMAGE
     Route: 048
     Dates: start: 19980101
  3. MADOPARK                       (BENSERAZIDE HYDROCHLORIDE, LEVODOPA) [Concomitant]
  4. REMERON [Concomitant]
  5. SINEMET [Concomitant]
  6. LEVODOPA                 (LEVODOPA) [Concomitant]
  7. ELDEPRYL [Concomitant]

REACTIONS (8)
  - ATRIAL SEPTAL DEFECT [None]
  - CARDIAC VALVE DISEASE [None]
  - MUSCULOSKELETAL STIFFNESS [None]
  - OSTEITIS [None]
  - PLEURISY [None]
  - PROSTATE CANCER [None]
  - RIGHT VENTRICULAR FAILURE [None]
  - TRICUSPID VALVE INCOMPETENCE [None]
